FAERS Safety Report 5405406-X (Version None)
Quarter: 2007Q3

REPORT INFORMATION
  Report Type: 
  Country: None (occurrence: None)
  Receive Date: 20070803
  Receipt Date: 20070723
  Transmission Date: 20080115
  Serious: Yes (Death, Hospitalization)
  Sender: FDA-Public Use
  Company Number: DE-BOEHRINGER INGELHEIM PHARMACEUTICALS, INC.-2007-DE-03774DE

PATIENT
  Sex: Female
  Weight: 90 kg

DRUGS (1)
  1. MICARDIS HCT [Suspect]
     Indication: ESSENTIAL HYPERTENSION
     Route: 048
     Dates: start: 20070406, end: 20070624

REACTIONS (2)
  - BILIARY COLIC [None]
  - PULMONARY EMBOLISM [None]
